FAERS Safety Report 7693929-2 (Version None)
Quarter: 2011Q3

REPORT INFORMATION
  Report Type: 
  Country: None (occurrence: None)
  Receive Date: 20110819
  Receipt Date: 20110809
  Transmission Date: 20111222
  Serious: Yes (Hospitalization)
  Sender: FDA-Public Use
  Company Number: DE-SANOFI-AVENTIS-2011SA044166

PATIENT
  Age: 76 Year
  Sex: Male
  Weight: 88 kg

DRUGS (16)
  1. LYRICA [Concomitant]
  2. TORSEMIDE [Concomitant]
  3. RAMIPRIL [Concomitant]
  4. MARCUMAR [Concomitant]
     Dosage: AS PER INR, GOAL 2.5
  5. RISPERDAL [Concomitant]
  6. FERRO ^SANOL^ [Concomitant]
  7. DIGIMERCK [Concomitant]
  8. TAMSULOSIN HCL [Concomitant]
  9. URINARY ANTISPASMODICS [Concomitant]
  10. SIMVASTATIN [Concomitant]
  11. ENOXAPARIN SODIUM [Concomitant]
     Route: 058
  12. BUPRENORPHINE [Concomitant]
     Dosage: 35 MCG/H, EVERY 4 DAYS
  13. BISOPROLOL FUMARATE [Concomitant]
  14. LEVOTHYROXINE SODIUM [Concomitant]
  15. DRONEDARONE HCL [Suspect]
     Indication: ATRIAL FIBRILLATION
     Route: 048
     Dates: start: 20110411
  16. PANTOPRAZOLE [Concomitant]

REACTIONS (1)
  - CARDIAC FAILURE [None]
